FAERS Safety Report 9156649 (Version 2)
Quarter: 2013Q2

REPORT INFORMATION
  Report Type: Spontaneous
  Country: US (occurrence: None)
  Receive Date: 20130208
  Receipt Date: 20130424
  Transmission Date: 20140414
  Serious: Yes (Life-Threatening, Hospitalization)
  Sender: FDA-Public Use
  Company Number: INT_00181_2013

PATIENT
  Age: 14 Year
  Sex: Female
  Weight: 56.4 kg

DRUGS (15)
  1. CEFEPIME [Suspect]
     Indication: ENTEROBACTER INFECTION
     Dosage: INTRAVENOUS (NOT OTHERWISE SPECIFIED)  (UNKNOWN UNTIL NOT CONTINUING)?
     Route: 042
  2. BACLOFEN [Concomitant]
  3. GABAPENTIN [Concomitant]
  4. ACETAMINOPHEN W/HYDROCODONE [Concomitant]
  5. CALCITRIOL [Concomitant]
  6. LEVOTHYROXINE [Concomitant]
  7. CALCIUM CARBONATE [Concomitant]
  8. LANSOPRAZOLE [Concomitant]
  9. SENNA-GEN [Concomitant]
  10. DOCUSATE [Concomitant]
  11. PROBIOTICS NOS [Concomitant]
  12. TOBRAMYCIN [Concomitant]
  13. ENOXAPARIN [Concomitant]
  14. DAILY MULTIVITAMIN [Concomitant]
  15. HUMAN IMMUNE GLOBULIN [Concomitant]

REACTIONS (14)
  - Blood pressure decreased [None]
  - Convulsion [None]
  - Neurotoxicity [None]
  - Renal failure [None]
  - General physical health deterioration [None]
  - Abnormal behaviour [None]
  - Sedation [None]
  - Mental status changes [None]
  - Communication disorder [None]
  - Sedation [None]
  - Pulmonary congestion [None]
  - Acquired diaphragmatic eventration [None]
  - Meningitis [None]
  - Toxicity to various agents [None]
